FAERS Safety Report 5518228-6 (Version None)
Quarter: 2007Q4

REPORT INFORMATION
  Report Type: 
  Country: None (occurrence: None)
  Receive Date: 20071115
  Receipt Date: 20071107
  Transmission Date: 20080405
  Serious: Yes (Other)
  Sender: FDA-Public Use
  Company Number: ES-BRISTOL-MYERS SQUIBB COMPANY-13974951

PATIENT
  Sex: Male

DRUGS (1)
  1. TRIGON-DEPOT [Suspect]
     Indication: DERMATITIS
     Route: 030

REACTIONS (3)
  - MUSCULAR WEAKNESS [None]
  - NAUSEA [None]
  - PAIN OF SKIN [None]
